FAERS Safety Report 6674507-0 (Version None)
Quarter: 2010Q2

REPORT INFORMATION
  Report Type: 
  Country: None (occurrence: None)
  Receive Date: 20100409
  Receipt Date: 20100329
  Transmission Date: 20101027
  Serious: Yes (Other)
  Sender: FDA-Public Use
  Company Number: US-PFIZER INC-2010040673

PATIENT
  Sex: Female
  Weight: 91 kg

DRUGS (3)
  1. ZOLOFT [Suspect]
     Indication: ANXIETY DISORDER
     Dosage: 200 MG, 1X/DAY
     Route: 048
     Dates: start: 20000101
  2. ZOLOFT [Suspect]
     Dosage: 50 MG, 1X/DAY
     Route: 048
  3. CELEXA [Suspect]
     Indication: ANXIETY DISORDER
     Dosage: UNK

REACTIONS (5)
  - AGITATION [None]
  - HYPERTENSION [None]
  - IRRITABILITY [None]
  - NERVOUSNESS [None]
  - PSYCHIATRIC SYMPTOM [None]
